FAERS Safety Report 4705426-4 (Version None)
Quarter: 2005Q3

REPORT INFORMATION
  Report Type: 
  Country: None (occurrence: None)
  Receive Date: 20050701
  Receipt Date: 20050613
  Transmission Date: 20060218
  Serious: Yes (Life-Threatening)
  Sender: FDA-Public Use
  Company Number: JP-GLAXOSMITHKLINE-B0384274A

PATIENT
  Age: 63 Year
  Sex: Female
  Weight: 55 kg

DRUGS (3)
  1. ZANTAC [Suspect]
     Indication: PREMEDICATION
     Dosage: 1U PER DAY
     Route: 042
     Dates: start: 20050209
  2. VENA [Concomitant]
     Route: 048
  3. DEXAMETHASONE [Concomitant]
     Route: 042

REACTIONS (5)
  - ALANINE AMINOTRANSFERASE INCREASED [None]
  - ANAPHYLACTIC SHOCK [None]
  - ASPARTATE AMINOTRANSFERASE INCREASED [None]
  - BLOOD CREATINE PHOSPHOKINASE INCREASED [None]
  - BLOOD LACTATE DEHYDROGENASE INCREASED [None]
